FAERS Safety Report 10984626 (Version 2)
Quarter: 2015Q2

REPORT INFORMATION
  Report Type: Spontaneous
  Country: US (occurrence: US)
  Receive Date: 20150403
  Receipt Date: 20150525
  Transmission Date: 20150821
  Serious: No
  Sender: FDA-Public Use
  Company Number: US-JNJFOC-20140202040

PATIENT
  Sex: Female

DRUGS (1)
  1. IMODIUM [Suspect]
     Active Substance: LOPERAMIDE HYDROCHLORIDE
     Indication: DIARRHOEA
     Dosage: 12-15 PILLS
     Route: 048

REACTIONS (4)
  - Overdose [Unknown]
  - Head titubation [Unknown]
  - Abdominal distension [Unknown]
  - Nail discolouration [Unknown]
